FAERS Safety Report 11769562 (Version 2)
Quarter: 2015Q4

REPORT INFORMATION
  Report Type: Report from Study
  Country: US (occurrence: US)
  Receive Date: 20151123
  Receipt Date: 20151221
  Transmission Date: 20160304
  Serious: Yes (Hospitalization)
  Sender: FDA-Public Use
  Company Number: US-VERTEX PHARMACEUTICALS-2015-005038

PATIENT
  Age: 34 Year
  Sex: Female

DRUGS (5)
  1. TEMOCILLIN [Suspect]
     Active Substance: TEMOCILLIN
     Indication: CYSTIC FIBROSIS RESPIRATORY INFECTION SUPPRESSION
     Dosage: UNK, BID
     Route: 065
     Dates: start: 2015, end: 201509
  2. AMIKACIN [Suspect]
     Active Substance: AMIKACIN
     Indication: CYSTIC FIBROSIS RESPIRATORY INFECTION SUPPRESSION
     Dosage: 3 TIMES PER WEEK
     Route: 042
     Dates: start: 2015, end: 201509
  3. COUMADIN [Suspect]
     Active Substance: WARFARIN SODIUM
     Indication: DEEP VEIN THROMBOSIS
     Dosage: 5 MG, QD
     Route: 065
     Dates: start: 20150826, end: 20150922
  4. AZITHROMYCIN [Suspect]
     Active Substance: AZITHROMYCIN ANHYDROUS
     Indication: CYSTIC FIBROSIS RESPIRATORY INFECTION SUPPRESSION
     Dosage: 500 MG, QD
     Route: 065
     Dates: start: 2015, end: 201509
  5. ORKAMBI [Suspect]
     Active Substance: IVACAFTOR\LUMACAFTOR
     Indication: CYSTIC FIBROSIS
     Dosage: UNK
     Route: 048
     Dates: start: 201509, end: 201509

REACTIONS (1)
  - Stevens-Johnson syndrome [Recovered/Resolved]

NARRATIVE: CASE EVENT DATE: 20150922
